FAERS Safety Report 6679362-0 (Version None)
Quarter: 2010Q2

REPORT INFORMATION
  Report Type: 
  Country: None (occurrence: None)
  Receive Date: 20100413
  Receipt Date: 20100331
  Transmission Date: 20101027
  Serious: Yes (Hospitalization)
  Sender: FDA-Public Use
  Company Number: GB-ROCHE-685233

PATIENT
  Age: 16 Year
  Sex: Male
  Weight: 60 kg

DRUGS (1)
  1. ISOTRETINOIN [Suspect]
     Route: 065

REACTIONS (4)
  - CONFUSIONAL STATE [None]
  - HEADACHE [None]
  - MYOCLONUS [None]
  - TOXIC ENCEPHALOPATHY [None]
